FAERS Safety Report 9805683 (Version 1)
Quarter: 2014Q1

REPORT INFORMATION
  Report Type: Spontaneous
  Country: US (occurrence: None)
  Receive Date: 20140108
  Receipt Date: 20140108
  Transmission Date: 20141002
  Serious: Yes (Hospitalization)
  Sender: FDA-Public Use
  Company Number: None

PATIENT
  Age: 59 Year
  Sex: Female
  Weight: 121 kg

DRUGS (2)
  1. NOVOLOG FLEX PEN [Suspect]
     Indication: DIABETES MELLITUS
     Route: 058
     Dates: start: 20140107
  2. NOVOLOG FLEXPEN [Concomitant]

REACTIONS (3)
  - Device malfunction [None]
  - Feeling abnormal [None]
  - Incorrect dose administered by device [None]
